FAERS Safety Report 9007805 (Version 1)
Quarter: 2013Q1

REPORT INFORMATION
  Report Type: Spontaneous
  Country: US (occurrence: US)
  Receive Date: 20130111
  Receipt Date: 20130111
  Transmission Date: 20140127
  Serious: Yes (Death)
  Sender: FDA-Public Use
  Company Number: US-009507513-0909USA03214

PATIENT
  Age: 77 Year
  Sex: Male
  Weight: 63.5 kg

DRUGS (1)
  1. SINGULAIR [Suspect]
     Indication: CHRONIC OBSTRUCTIVE PULMONARY DISEASE
     Dosage: 10 MG, HS
     Route: 048
     Dates: start: 20040603, end: 20080309

REACTIONS (1)
  - Completed suicide [Fatal]
